FAERS Safety Report 21044026 (Version 1)
Quarter: 2022Q3

REPORT INFORMATION
  Report Type: Report from Study
  Country: JP (occurrence: None)
  Receive Date: 20220705
  Receipt Date: 20220705
  Transmission Date: 20221027
  Serious: Yes (Hospitalization)
  Sender: FDA-Public Use
  Company Number: JP-Merck Healthcare KGaA-9227383

PATIENT
  Age: 74 Year
  Sex: Male
  Weight: 63 kg

DRUGS (3)
  1. BAVENCIO [Suspect]
     Active Substance: AVELUMAB
     Indication: Transitional cell carcinoma
     Dosage: DOSING RATE: 281 ML/HR.
     Route: 041
     Dates: start: 20210318, end: 20210318
  2. ACETAMINOPHEN [Concomitant]
     Active Substance: ACETAMINOPHEN
     Indication: Premedication
     Route: 048
     Dates: start: 20210318, end: 20210318
  3. RESTAMIN [DIPHENHYDRAMINE HYDROCHLORIDE] [Concomitant]
     Indication: Premedication
     Route: 048
     Dates: start: 20210318, end: 20210318

REACTIONS (4)
  - Blood pressure increased [Recovered/Resolved]
  - Oxygen saturation decreased [Recovered/Resolved]
  - Chills [Recovered/Resolved]
  - Aortic dissection [Unknown]

NARRATIVE: CASE EVENT DATE: 20210318
